FAERS Safety Report 7807574-9 (Version None)
Quarter: 2011Q4

REPORT INFORMATION
  Report Type: 
  Country: None (occurrence: None)
  Receive Date: 20111011
  Receipt Date: 20110928
  Transmission Date: 20120403
  Serious: Yes (Disabling, Other)
  Sender: FDA-Public Use
  Company Number: PHHY2011EC87012

PATIENT
  Sex: Female

DRUGS (1)
  1. DIOVAN [Suspect]
     Indication: HYPERTENSION
     Dosage: 1 DF DAILY (80 MG)
     Route: 048
     Dates: start: 20090801

REACTIONS (12)
  - FALL [None]
  - PSYCHIATRIC SYMPTOM [None]
  - DIZZINESS [None]
  - URINARY TRACT INFLAMMATION [None]
  - HYPOTENSION [None]
  - TACHYCARDIA [None]
  - BURNING SENSATION [None]
  - VISUAL IMPAIRMENT [None]
  - ANXIETY [None]
  - NASOPHARYNGITIS [None]
  - VERTIGO [None]
  - HEAD DISCOMFORT [None]
